FAERS Safety Report 24534123 (Version 1)
Quarter: 2024Q4

REPORT INFORMATION
  Report Type: Report from Study
  Country: US (occurrence: US)
  Receive Date: 20241022
  Receipt Date: 20241022
  Transmission Date: 20250114
  Serious: Yes (Other)
  Sender: JAZZ
  Company Number: US-JAZZ-2019-US-011420

PATIENT
  Sex: Female

DRUGS (47)
  1. XYREM [Suspect]
     Active Substance: SODIUM OXYBATE
     Indication: Narcolepsy
     Dosage: 2.25 G, BID
     Route: 048
     Dates: start: 201508, end: 201512
  2. XYREM [Suspect]
     Active Substance: SODIUM OXYBATE
     Indication: Cataplexy
     Dosage: 2.25 G, BID
     Route: 048
     Dates: start: 201704, end: 201705
  3. XYREM [Suspect]
     Active Substance: SODIUM OXYBATE
     Indication: Somnolence
     Dosage: DOSE ADJUSTMENT
     Route: 048
     Dates: start: 201705, end: 201708
  4. XYREM [Suspect]
     Active Substance: SODIUM OXYBATE
     Dosage: 3.25 G, BID
     Route: 048
     Dates: start: 201708, end: 201709
  5. XYREM [Suspect]
     Active Substance: SODIUM OXYBATE
     Dosage: 3 GRAM, BID
  6. XYREM [Suspect]
     Active Substance: SODIUM OXYBATE
     Dosage: 3.75 GRAM, BID
  7. CANNABIS SATIVA SUBSP. INDICA TOP [Suspect]
     Active Substance: CANNABIS SATIVA SUBSP. INDICA TOP
     Indication: Product used for unknown indication
     Dosage: UNK
  8. NUVIGIL [Concomitant]
     Active Substance: ARMODAFINIL
     Dosage: 250 MG TABLET
  9. GLICLAZIDE [Concomitant]
     Active Substance: GLICLAZIDE
     Dosage: UNK
  10. ADDERALL [Concomitant]
     Active Substance: AMPHETAMINE ASPARTATE\AMPHETAMINE SULFATE\DEXTROAMPHETAMINE SACCHARATE\DEXTROAMPHETAMINE SULFATE
     Dosage: 20 MG TABLET
     Dates: start: 20190628
  11. ADDERALL [Concomitant]
     Active Substance: AMPHETAMINE ASPARTATE\AMPHETAMINE SULFATE\DEXTROAMPHETAMINE SACCHARATE\DEXTROAMPHETAMINE SULFATE
     Dosage: 10 MG TABLET
     Dates: start: 20220831
  12. DEXTROAMPHETAMINE [Concomitant]
     Active Substance: DEXTROAMPHETAMINE
     Dosage: UNK
  13. ACETAMINOPHEN [Concomitant]
     Active Substance: ACETAMINOPHEN
     Dosage: UNK
  14. HYDROCORTISONE [Concomitant]
     Active Substance: HYDROCORTISONE
     Dosage: UNK
  15. IRON [Concomitant]
     Active Substance: IRON
     Dosage: UNK
  16. LEVOTHYROXINE [Concomitant]
     Active Substance: LEVOTHYROXINE
     Dosage: UNK
  17. MAGNESIUM OXIDE [Concomitant]
     Active Substance: MAGNESIUM OXIDE
     Dosage: UNK
  18. METHYLCOBALAMIN [Concomitant]
     Active Substance: METHYLCOBALAMIN
     Dosage: UNK
  19. CEFOTAXIME SODIUM [Concomitant]
     Active Substance: CEFOTAXIME SODIUM
     Dosage: UNK
  20. SUBOXONE [Concomitant]
     Active Substance: BUPRENORPHINE HYDROCHLORIDE\NALOXONE HYDROCHLORIDE
     Dosage: 8 MG-2 MG SL FILM
     Dates: start: 20150629
  21. URSODIOL [Concomitant]
     Active Substance: URSODIOL
     Dosage: UNK
  22. VITAMIN B [Concomitant]
     Active Substance: VITAMIN B
     Dosage: UNK
  23. ERGOCALCIFEROL [Concomitant]
     Active Substance: ERGOCALCIFEROL
     Dosage: UNK
  24. CAFFEINE [Concomitant]
     Active Substance: CAFFEINE
     Dosage: 200 MG TABLET
     Dates: start: 20120401
  25. MOTRIN IB [Concomitant]
     Active Substance: IBUPROFEN
     Dosage: 200 MG CAPLET
     Dates: start: 20150724
  26. LORATADINE [Concomitant]
     Active Substance: LORATADINE
     Dosage: 10 MG TABLET
     Dates: start: 20240703
  27. DEXTROAMPHETAMINE [Concomitant]
     Active Substance: DEXTROAMPHETAMINE
     Dosage: 10 MG TAB
     Dates: start: 20190624
  28. AMLODIPINE BESYLATE [Concomitant]
     Active Substance: AMLODIPINE BESYLATE
     Dosage: 5 MG TAB
     Dates: start: 20220810
  29. BENZONATATE [Concomitant]
     Active Substance: BENZONATATE
     Dosage: 100 MG CAPSULE
     Dates: start: 20220118
  30. CETIRIZINE HCL [Concomitant]
     Active Substance: CETIRIZINE HYDROCHLORIDE
     Dosage: 10 MG TABLET
     Dates: start: 20211119
  31. CHLORHEXIDINE [Concomitant]
     Active Substance: CHLORHEXIDINE
     Dosage: 0.12% RINSE
     Dates: start: 20200617
  32. FLUTICASONE PROPIONATE [Concomitant]
     Active Substance: FLUTICASONE PROPIONATE
     Dosage: 50 MCG SPRAY
     Dates: start: 20220118
  33. HYDROCHLOROTHIAZIDE [Concomitant]
     Active Substance: HYDROCHLOROTHIAZIDE
     Dosage: 12.5 MG CP
     Dates: start: 20210629
  34. HYDROCHLOROTHIAZIDE [Concomitant]
     Active Substance: HYDROCHLOROTHIAZIDE
     Dosage: 25 MG CP
     Dates: start: 20220829
  35. HYDROXYZINE HYDROCHLORIDE [Concomitant]
     Active Substance: HYDROXYZINE HYDROCHLORIDE
     Dosage: 10 MG TABLET
     Dates: start: 20211026
  36. HYDROXYZINE HYDROCHLORIDE [Concomitant]
     Active Substance: HYDROXYZINE HYDROCHLORIDE
     Dosage: 25 MG TABLET
     Dates: start: 20220829
  37. IBUPROFEN [Concomitant]
     Active Substance: IBUPROFEN
     Dosage: 800 MG TABLET
     Dates: start: 20211214
  38. OMEPRAZOLE [Concomitant]
     Active Substance: OMEPRAZOLE
     Dosage: 40 MG CAPSULE
     Dates: start: 20220829
  39. ONDANSETRON [Concomitant]
     Active Substance: ONDANSETRON
     Dosage: 4 MG TABLET
     Dates: start: 20210312
  40. ROBAFEN DM [Concomitant]
     Active Substance: DEXTROMETHORPHAN HYDROBROMIDE\GUAIFENESIN
     Dosage: COUGH LIQUID
     Dates: start: 20220118
  41. SPIRONOLACTONE [Concomitant]
     Active Substance: SPIRONOLACTONE
     Dosage: 100 MG TABLET
     Dates: start: 20220301
  42. SPIRONOLACTONE [Concomitant]
     Active Substance: SPIRONOLACTONE
     Dosage: 50 MG TABLET
     Dates: start: 20220301
  43. PROAIR HFA [Concomitant]
     Active Substance: ALBUTEROL SULFATE
     Dosage: 90 MCG INHALER
     Dates: start: 20220118
  44. NAPROXEN [Concomitant]
     Active Substance: NAPROXEN
     Dosage: 500 MG TABLET
     Dates: start: 20210305
  45. NAPROXEN [Concomitant]
     Active Substance: NAPROXEN
     Dosage: 375 MG TABLET
     Dates: start: 20210310
  46. AZELASTINE [Concomitant]
     Active Substance: AZELASTINE
     Dosage: 0.1% (137 MCG) SPRY
     Dates: start: 20210305
  47. ACETAMINOPHEN [Concomitant]
     Active Substance: ACETAMINOPHEN
     Dosage: 3 TABLET
     Dates: start: 20200617

REACTIONS (6)
  - Sjogren^s syndrome [Unknown]
  - Cataract [Unknown]
  - Retinal detachment [Unknown]
  - Pain [Unknown]
  - Blood pressure increased [Not Recovered/Not Resolved]
  - Substance use [Unknown]
